FAERS Safety Report 5126734-1 (Version None)
Quarter: 2006Q4

REPORT INFORMATION
  Report Type: 
  Country: None (occurrence: None)
  Receive Date: 20061012
  Receipt Date: 20061012
  Transmission Date: 20070319
  Serious: Yes (Other)
  Sender: FDA-Public Use
  Company Number: None

PATIENT
  Sex: Male
  Weight: 113.3993 kg

DRUGS (1)
  1. SEROQUEL [Suspect]
     Indication: MENTAL DISORDER
     Dosage: 25MG B.I.D PO
     Route: 048
     Dates: start: 20051213, end: 20061009

REACTIONS (3)
  - DRUG DISPENSING ERROR [None]
  - MEDICATION ERROR [None]
  - WRONG DRUG ADMINISTERED [None]
